FAERS Safety Report 12435013 (Version 1)
Quarter: 2016Q2

REPORT INFORMATION
  Report Type: Spontaneous
  Country: US (occurrence: US)
  Receive Date: 20160603
  Receipt Date: 20160603
  Transmission Date: 20160815
  Serious: No
  Sender: FDA-Public Use
  Company Number: US-ROCHE-1656106

PATIENT

DRUGS (1)
  1. KLONOPIN [Suspect]
     Active Substance: CLONAZEPAM
     Indication: PRODUCT USED FOR UNKNOWN INDICATION
     Dosage: 1 TO 3 TIMES DAILY
     Route: 065

REACTIONS (9)
  - Constipation [Unknown]
  - Asthenia [Unknown]
  - Anxiety [Unknown]
  - Paraesthesia [Unknown]
  - Pain [Unknown]
  - Blood pressure increased [Unknown]
  - Balance disorder [Unknown]
  - Gait disturbance [Unknown]
  - Weaning failure [Unknown]
